FAERS Safety Report 9679503 (Version 1)
Quarter: 2013Q4

REPORT INFORMATION
  Report Type: Spontaneous
  Country: US (occurrence: US)
  Receive Date: 20131109
  Receipt Date: 20131109
  Transmission Date: 20140711
  Serious: No
  Sender: FDA-Public Use
  Company Number: US-SANOFI-AVENTIS-2013SA062630

PATIENT
  Age: 55 Year
  Sex: Male
  Weight: 83.91 kg

DRUGS (2)
  1. ALLEGRA-D [Suspect]
     Route: 048
  2. TADALAFIL [Concomitant]
     Route: 065
     Dates: start: 2008

REACTIONS (2)
  - Somnolence [Recovered/Resolved]
  - Drug ineffective [Unknown]
